FAERS Safety Report 13925740 (Version 1)
Quarter: 2017Q3

REPORT INFORMATION
  Report Type: Spontaneous
  Country: US (occurrence: US)
  Receive Date: 20170831
  Receipt Date: 20170831
  Transmission Date: 20171127
  Serious: Yes (Death, Hospitalization, Other)
  Sender: FDA-Public Use
  Company Number: US-EXELIXIS-CABO-17010315

PATIENT

DRUGS (2)
  1. CABOMETYX [Suspect]
     Active Substance: CABOZANTINIB S-MALATE
     Indication: THYROID CANCER
  2. ENOXAPARIN [Suspect]
     Active Substance: ENOXAPARIN
     Indication: PELVIC VENOUS THROMBOSIS

REACTIONS (7)
  - Dehydration [Recovered/Resolved]
  - Paralysis [Unknown]
  - Seizure [Unknown]
  - Haemorrhage intracranial [Fatal]
  - Pelvic venous thrombosis [Unknown]
  - Diarrhoea [Recovered/Resolved]
  - Acute kidney injury [Recovered/Resolved]
